FAERS Safety Report 19841755 (Version 1)
Quarter: 2021Q3

REPORT INFORMATION
  Report Type: Spontaneous
  Country: DE (occurrence: DE)
  Receive Date: 20210915
  Receipt Date: 20210915
  Transmission Date: 20211014
  Serious: Yes (Hospitalization, Other)
  Sender: FDA-Public Use
  Company Number: DE-ABBVIE-17P-062-2171327-00

PATIENT
  Age: 37 Year
  Sex: Female

DRUGS (31)
  1. VALPROATE SALT [Suspect]
     Active Substance: VALPROATE SODIUM
     Route: 065
     Dates: start: 20140222, end: 20140714
  2. LITHIUM. [Suspect]
     Active Substance: LITHIUM
     Route: 065
  3. VALPROATE SALT [Suspect]
     Active Substance: VALPROATE SODIUM
     Indication: BIPOLAR DISORDER
     Dosage: 1300?2500 MG DAILY
     Route: 048
  4. VALPROATE SALT [Suspect]
     Active Substance: VALPROATE SODIUM
     Route: 065
     Dates: start: 201310
  5. NOVORAPID [Concomitant]
     Active Substance: INSULIN ASPART
     Indication: PRODUCT USED FOR UNKNOWN INDICATION
     Dates: start: 2014
  6. VALPROATE SODIUM. [Suspect]
     Active Substance: VALPROATE SODIUM
     Indication: BIPOLAR DISORDER
     Route: 048
  7. VALPROATE SALT [Suspect]
     Active Substance: VALPROATE SODIUM
     Route: 048
  8. QUETIAPINE FUMARATE. [Suspect]
     Active Substance: QUETIAPINE FUMARATE
     Dosage: 50?100 MG, DAILY
     Route: 048
     Dates: start: 201310
  9. PANTOPRAZOLE [Concomitant]
     Active Substance: PANTOPRAZOLE
     Indication: PRODUCT USED FOR UNKNOWN INDICATION
  10. CITALOPRAM [Concomitant]
     Active Substance: CITALOPRAM HYDROBROMIDE
     Indication: PRODUCT USED FOR UNKNOWN INDICATION
  11. LAMOTRIGINE. [Concomitant]
     Active Substance: LAMOTRIGINE
     Indication: PRODUCT USED FOR UNKNOWN INDICATION
  12. ERGENYL CHRONO [Suspect]
     Active Substance: VALPROIC ACID
     Indication: BIPOLAR DISORDER
     Route: 048
  13. ERGENYL CHRONO [Suspect]
     Active Substance: VALPROIC ACID
     Route: 048
     Dates: start: 20131206, end: 20140221
  14. ERGENYL CHRONO [Suspect]
     Active Substance: VALPROIC ACID
     Route: 065
     Dates: start: 20140715, end: 20140725
  15. LITHIUM. [Suspect]
     Active Substance: LITHIUM
     Dosage: LOW DOSE
     Route: 048
  16. ARIPIPRAZOLE. [Concomitant]
     Active Substance: ARIPIPRAZOLE
     Indication: PRODUCT USED FOR UNKNOWN INDICATION
  17. AMLODIPINE [Concomitant]
     Active Substance: AMLODIPINE BESYLATE
     Indication: PRODUCT USED FOR UNKNOWN INDICATION
  18. VALPROATE SODIUM. [Suspect]
     Active Substance: VALPROATE SODIUM
     Route: 048
     Dates: start: 201310
  19. VALPROATE SODIUM. [Suspect]
     Active Substance: VALPROATE SODIUM
     Route: 065
     Dates: start: 20140627, end: 20140715
  20. QUETIAPINE FUMARATE. [Suspect]
     Active Substance: QUETIAPINE FUMARATE
     Indication: BIPOLAR DISORDER
     Dosage: 50  200 MG DAILY
     Route: 065
  21. QUETIAPINE FUMARATE. [Suspect]
     Active Substance: QUETIAPINE FUMARATE
     Route: 065
  22. INSULIN HUMAN [Concomitant]
     Active Substance: INSULIN HUMAN
     Indication: PRODUCT USED FOR UNKNOWN INDICATION
     Dates: start: 2014
  23. L?THYROXINE [Concomitant]
     Active Substance: LEVOTHYROXINE
     Indication: PRODUCT USED FOR UNKNOWN INDICATION
  24. VALPROATE SALT [Suspect]
     Active Substance: VALPROATE SODIUM
     Dosage: 1000  0 ? 1000
     Route: 065
     Dates: start: 20140520, end: 20140524
  25. QUETIAPINE FUMARATE. [Suspect]
     Active Substance: QUETIAPINE FUMARATE
     Route: 065
  26. VALPROATE SODIUM. [Suspect]
     Active Substance: VALPROATE SODIUM
     Route: 065
     Dates: start: 20140221
  27. VALPROATE SALT [Suspect]
     Active Substance: VALPROATE SODIUM
     Route: 048
  28. LITHIUM. [Suspect]
     Active Substance: LITHIUM
     Indication: BIPOLAR DISORDER
     Route: 048
  29. QUETIAPINE FUMARATE. [Suspect]
     Active Substance: QUETIAPINE FUMARATE
     Route: 065
  30. LITHIUM. [Suspect]
     Active Substance: LITHIUM
     Route: 065
  31. MIRTAZAPINE. [Concomitant]
     Active Substance: MIRTAZAPINE
     Indication: PRODUCT USED FOR UNKNOWN INDICATION

REACTIONS (23)
  - Frequent bowel movements [Unknown]
  - Abdominal pain [Unknown]
  - Mania [Unknown]
  - Gastric disorder [Unknown]
  - Sciatica [Unknown]
  - Abdominal pain [Unknown]
  - Gestational diabetes [Unknown]
  - Polyhydramnios [Unknown]
  - Blood glucose increased [Unknown]
  - Abdominal distension [Unknown]
  - Constipation [Unknown]
  - Live birth [Unknown]
  - Maternal exposure during pregnancy [Unknown]
  - Bipolar disorder [Unknown]
  - Blood glucose fluctuation [Unknown]
  - Abdominal distension [Unknown]
  - Tremor [Unknown]
  - Weight increased [Unknown]
  - Bipolar I disorder [Unknown]
  - Sedation [Unknown]
  - Diarrhoea [Unknown]
  - Obesity [Unknown]
  - Adverse drug reaction [Unknown]

NARRATIVE: CASE EVENT DATE: 2014
